FAERS Safety Report 5313374-4 (Version None)
Quarter: 2007Q2

REPORT INFORMATION
  Report Type: 
  Country: None (occurrence: None)
  Receive Date: 20070426
  Receipt Date: 20070426
  Transmission Date: 20071010
  Serious: Yes (Other)
  Sender: FDA-Public Use
  Company Number: None

PATIENT
  Sex: Female
  Weight: 68.0396 kg

DRUGS (1)
  1. GADOLINIUM [Suspect]
     Dates: start: 20050722, end: 20050723

REACTIONS (1)
  - NEPHROGENIC FIBROSING DERMOPATHY [None]
